FAERS Safety Report 22071250 (Version 1)
Quarter: 2023Q1

REPORT INFORMATION
  Report Type: Spontaneous
  Country: US (occurrence: None)
  Receive Date: 20230307
  Receipt Date: 20230307
  Transmission Date: 20230417
  Serious: Yes (Hospitalization)
  Sender: FDA-Public Use
  Company Number: None

PATIENT
  Sex: Male

DRUGS (1)
  1. GILENYA [Suspect]
     Active Substance: FINGOLIMOD HYDROCHLORIDE
     Indication: Multiple sclerosis
     Dosage: FREQUENCY : DAILY;?
     Route: 048
     Dates: start: 20170809

REACTIONS (9)
  - Memory impairment [None]
  - Therapy interrupted [None]
  - Vomiting [None]
  - Feeding disorder [None]
  - Diarrhoea [None]
  - Computerised tomogram abnormal [None]
  - Confusional state [None]
  - Disorientation [None]
  - Multiple sclerosis relapse [None]
